FAERS Safety Report 5146773-4 (Version None)
Quarter: 2006Q4

REPORT INFORMATION
  Report Type: 
  Country: None (occurrence: None)
  Receive Date: 20061109
  Receipt Date: 20061030
  Transmission Date: 20070319
  Serious: Yes (Disabling)
  Sender: FDA-Public Use
  Company Number: JP-JNJFOC-20060505927

PATIENT
  Sex: Male

DRUGS (6)
  1. ITRIZOLE [Suspect]
     Indication: BRONCHOPULMONARY ASPERGILLOSIS
     Route: 048
     Dates: start: 20060412, end: 20060526
  2. MICAFUNGIN SODIUM [Concomitant]
  3. FAMOTIDINE [Concomitant]
     Route: 048
  4. DICLOFENAC SODIUM [Concomitant]
     Route: 048
  5. GATIFLO [Concomitant]
     Indication: BACTERIAL INFECTION
     Route: 048
     Dates: start: 20060404, end: 20060416
  6. RINDERON A [Concomitant]
     Route: 031

REACTIONS (7)
  - ASPERGILLOSIS [None]
  - BLOOD BETA-D-GLUCAN INCREASED [None]
  - CONDITION AGGRAVATED [None]
  - DEAFNESS [None]
  - HYPOACUSIS [None]
  - MENINGITIS [None]
  - PACHYMENINGITIS [None]
